FAERS Safety Report 11109235 (Version 1)
Quarter: 2015Q2

REPORT INFORMATION
  Report Type: Spontaneous
  Country: US (occurrence: None)
  Receive Date: 20150511
  Receipt Date: 20150511
  Transmission Date: 20150821
  Serious: Yes (Disabling)
  Sender: FDA-Public Use
  Company Number: None

PATIENT
  Age: 69 Year
  Sex: Female
  Weight: 90.72 kg

DRUGS (9)
  1. IRBESARTIN [Concomitant]
  2. CALCIUM [Concomitant]
     Active Substance: CALCIUM
  3. AMLODIPINE BESYLATE. [Suspect]
     Active Substance: AMLODIPINE BESYLATE
     Indication: HYPERTENSION
     Route: 048
     Dates: start: 20150225, end: 20150430
  4. BABY ASPIRIN [Concomitant]
     Active Substance: ASPIRIN
  5. MULTIVITAMIN VIT C [Concomitant]
  6. SYNTHROID [Concomitant]
     Active Substance: LEVOTHYROXINE SODIUM
  7. METOPROLOL [Concomitant]
     Active Substance: METOPROLOL
  8. PROBIOTIC [Concomitant]
     Active Substance: PROBIOTICS NOS
  9. NEXIUM [Concomitant]
     Active Substance: ESOMEPRAZOLE MAGNESIUM

REACTIONS (4)
  - Skin haemorrhage [None]
  - Gait disturbance [None]
  - Skin disorder [None]
  - Pain in extremity [None]

NARRATIVE: CASE EVENT DATE: 20141101
